FAERS Safety Report 4639976-6 (Version None)
Quarter: 2005Q2

REPORT INFORMATION
  Report Type: 
  Country: None (occurrence: None)
  Receive Date: 20050415
  Receipt Date: 20050323
  Transmission Date: 20051028
  Serious: Yes (Other)
  Sender: FDA-Public Use
  Company Number: GBS050317000

PATIENT
  Age: 11 Year
  Sex: Male

DRUGS (1)
  1. STRATTERA [Suspect]
     Indication: ATTENTION DEFICIT/HYPERACTIVITY DISORDER
     Dosage: 60 MG DAY
     Dates: start: 20041018, end: 20050322

REACTIONS (2)
  - DEPRESSION SUICIDAL [None]
  - SUICIDE ATTEMPT [None]
